FAERS Safety Report 25244964 (Version 1)
Quarter: 2025Q2

REPORT INFORMATION
  Report Type: Spontaneous
  Country: KR (occurrence: KR)
  Receive Date: 20250428
  Receipt Date: 20250428
  Transmission Date: 20250717
  Serious: Yes (Congenital Anomaly, Other)
  Sender: MYLAN
  Company Number: KR-MYLANLABS-2025M1034592

PATIENT
  Sex: Female

DRUGS (4)
  1. ZELDOX [Suspect]
     Active Substance: ZIPRASIDONE
     Indication: Product used for unknown indication
  2. ZELDOX [Suspect]
     Active Substance: ZIPRASIDONE
     Route: 048
  3. ZELDOX [Suspect]
     Active Substance: ZIPRASIDONE
     Route: 048
  4. ZELDOX [Suspect]
     Active Substance: ZIPRASIDONE

REACTIONS (1)
  - Long QT syndrome congenital [Unknown]
